FAERS Safety Report 5215218-8 (Version None)
Quarter: 2007Q1

REPORT INFORMATION
  Report Type: 
  Country: None (occurrence: None)
  Receive Date: 20070117
  Receipt Date: 20070105
  Transmission Date: 20070707
  Serious: Yes (Hospitalization)
  Sender: FDA-Public Use
  Company Number: 2006SP008652

PATIENT
  Age: 76 Year
  Weight: 75.8 kg

DRUGS (6)
  1. TEMOZOMIDE (S-P) (TEMOZOMIDE) [Suspect]
     Indication: GLIOBLASTOMA MULTIFORME
     Dosage: SEE IMAGE
     Route: 048
     Dates: start: 20061113, end: 20061204
  2. TEMOZOMIDE (S-P) (TEMOZOMIDE) [Suspect]
     Indication: GLIOBLASTOMA MULTIFORME
     Dosage: SEE IMAGE
     Route: 048
     Dates: start: 20061211, end: 20061214
  3. DEXAMETHASONE TAB [Suspect]
     Indication: DRUG USE FOR UNKNOWN INDICATION
     Dosage: 3 MG QD
  4. INSULIN [Suspect]
     Indication: DRUG USE FOR UNKNOWN INDICATION
  5. NORMITEN (ATENOLOL) [Suspect]
     Indication: DRUG USE FOR UNKNOWN INDICATION
  6. RADIATION THERAPY [Concomitant]

REACTIONS (5)
  - BACTERIAL INFECTION [None]
  - CONJUNCTIVITIS [None]
  - MENINGITIS VIRAL [None]
  - VIRAL INFECTION [None]
  - VITREOUS DETACHMENT [None]
